FAERS Safety Report 8246389-7 (Version None)
Quarter: 2012Q1

REPORT INFORMATION
  Report Type: 
  Country: None (occurrence: None)
  Receive Date: 20120330
  Receipt Date: 20120321
  Transmission Date: 20120608
  Serious: Yes (Death, Life-Threatening)
  Sender: FDA-Public Use
  Company Number: JP-VERTEX PHARMACEUTICALS INC.-AE-2012-003675

PATIENT
  Age: 64 Year
  Sex: Male

DRUGS (11)
  1. PORTOLAC [Concomitant]
  2. MAGMITT [Concomitant]
  3. AMARYL [Concomitant]
  4. ACTOS [Concomitant]
  5. RIBAVIRIN [Concomitant]
     Indication: HEPATITIS C
     Route: 048
     Dates: start: 20120306, end: 20120311
  6. TALION OD [Concomitant]
  7. URSO 250 [Concomitant]
  8. NEXIUM [Concomitant]
  9. TELAVIC (TELAPREVIR) [Suspect]
     Indication: HEPATITIS C
     Route: 048
     Dates: start: 20120306, end: 20120311
  10. PROMACTA [Concomitant]
  11. PEG-INTRON [Concomitant]
     Indication: HEPATITIS C
     Route: 058
     Dates: start: 20120306, end: 20120306

REACTIONS (1)
  - LIVER DISORDER [None]
